FAERS Safety Report 11444878 (Version 1)
Quarter: 2015Q3

REPORT INFORMATION
  Report Type: Spontaneous
  Country: CA (occurrence: CA)
  Receive Date: 20150902
  Receipt Date: 20150902
  Transmission Date: 20151125
  Serious: Yes (Other)
  Sender: FDA-Public Use
  Company Number: CA-TEVA-590500ACC

PATIENT
  Age: 52 Year
  Sex: Female
  Weight: 78.09 kg

DRUGS (2)
  1. VENLAFAXINE XR [Suspect]
     Active Substance: VENLAFAXINE HYDROCHLORIDE
     Indication: DEPRESSION
  2. VENLAFAXINE XR [Suspect]
     Active Substance: VENLAFAXINE HYDROCHLORIDE
     Indication: STRESS
     Dosage: 75 MILLIGRAM DAILY;
     Route: 048

REACTIONS (7)
  - Paraesthesia [Recovered/Resolved]
  - Tremor [Recovered/Resolved]
  - Feeling jittery [Recovered/Resolved]
  - Deafness [Recovered/Resolved]
  - Visual impairment [Recovered/Resolved]
  - Product substitution issue [Recovered/Resolved]
  - Feeling abnormal [Recovered/Resolved]
